FAERS Safety Report 5789245-6 (Version None)
Quarter: 2008Q2

REPORT INFORMATION
  Report Type: 
  Country: None (occurrence: None)
  Receive Date: 20080625
  Receipt Date: 20080625
  Transmission Date: 20081010
  Serious: Yes (Hospitalization, Disabling)
  Sender: FDA-Public Use
  Company Number: None

PATIENT
  Age: 43 Year
  Sex: Female
  Weight: 70.3075 kg

DRUGS (3)
  1. WELLBUTRIN XL [Suspect]
     Indication: ANXIETY DISORDER
     Dosage: 1 TABLET DAILY PO
     Route: 048
     Dates: start: 20030501, end: 20031104
  2. WELLBUTRIN XL [Suspect]
     Indication: DEPRESSION
     Dosage: 1 TABLET DAILY PO
     Route: 048
     Dates: start: 20030501, end: 20031104
  3. DILANTIN [Concomitant]

REACTIONS (4)
  - GRAND MAL CONVULSION [None]
  - HEAD INJURY [None]
  - LOSS OF CONSCIOUSNESS [None]
  - WEIGHT DECREASED [None]
